FAERS Safety Report 9173634 (Version 2)
Quarter: 2013Q2

REPORT INFORMATION
  Report Type: Spontaneous
  Country: US (occurrence: US)
  Receive Date: 20130320
  Receipt Date: 20130403
  Transmission Date: 20140414
  Serious: No
  Sender: FDA-Public Use
  Company Number: US-009507513-1303USA009260

PATIENT
  Age: 84 Year
  Sex: Female

DRUGS (2)
  1. NASONEX [Suspect]
     Indication: SINUS DISORDER
     Dosage: ONE SPRAY TWICE A DAY IN EACH NOSTRIL
     Route: 045
  2. PRAVASTATIN SODIUM [Concomitant]

REACTIONS (6)
  - Musculoskeletal discomfort [Not Recovered/Not Resolved]
  - Rhinorrhoea [Not Recovered/Not Resolved]
  - Dysphonia [Not Recovered/Not Resolved]
  - Cough [Not Recovered/Not Resolved]
  - Drug dose omission [Unknown]
  - Product quality issue [Unknown]
